FAERS Safety Report 4693596-6 (Version None)
Quarter: 2005Q2

REPORT INFORMATION
  Report Type: 
  Country: None (occurrence: None)
  Receive Date: 20050617
  Receipt Date: 20050606
  Transmission Date: 20051028
  Serious: Yes (Other)
  Sender: FDA-Public Use
  Company Number: FR-ROCHE-407197

PATIENT
  Age: 26 Year
  Sex: Female
  Weight: 60 kg

DRUGS (2)
  1. ROACCUTANE [Suspect]
     Indication: ACNE
     Route: 048
     Dates: start: 20050115
  2. ROACCUTANE [Suspect]
     Route: 048
     Dates: end: 20050606

REACTIONS (3)
  - BLOOD CREATINE PHOSPHOKINASE INCREASED [None]
  - MYALGIA [None]
  - TENDON DISORDER [None]
